FAERS Safety Report 7302915-3 (Version None)
Quarter: 2011Q1

REPORT INFORMATION
  Report Type: 
  Country: None (occurrence: None)
  Receive Date: 20110218
  Receipt Date: 20110214
  Transmission Date: 20110831
  Serious: Yes (Life-Threatening, Hospitalization, Other)
  Sender: FDA-Public Use
  Company Number: US-ASTRAZENECA-2010SE42341

PATIENT
  Age: 65 Year
  Sex: Female
  Weight: 90.3 kg

DRUGS (6)
  1. SEROQUEL [Suspect]
     Indication: DEPRESSION
     Route: 048
     Dates: start: 20080101, end: 20101201
  2. SEROQUEL [Suspect]
     Indication: SLEEP DISORDER
     Route: 048
     Dates: start: 20080101, end: 20101201
  3. SEROQUEL [Suspect]
     Indication: INSOMNIA
     Route: 048
     Dates: start: 20080101, end: 20101201
  4. SOMA [Concomitant]
  5. ATIVAN [Concomitant]
  6. PAXIL [Concomitant]

REACTIONS (15)
  - CARDIAC ARREST [None]
  - HOSPITALISATION [None]
  - MEMORY IMPAIRMENT [None]
  - POST PROCEDURAL COMPLICATION [None]
  - LIMB CRUSHING INJURY [None]
  - FEELING ABNORMAL [None]
  - LOWER LIMB FRACTURE [None]
  - COMA [None]
  - INSOMNIA [None]
  - THINKING ABNORMAL [None]
  - DRUG DOSE OMISSION [None]
  - FALL [None]
  - SPLENIC INJURY [None]
  - WEIGHT INCREASED [None]
  - HAEMORRHAGE [None]
